FAERS Safety Report 9478584 (Version 4)
Quarter: 2013Q4

REPORT INFORMATION
  Report Type: Spontaneous
  Country: US (occurrence: US)
  Receive Date: 20130827
  Receipt Date: 20131031
  Transmission Date: 20140711
  Serious: Yes (Other)
  Sender: FDA-Public Use
  Company Number: US-PFIZER INC-2013244387

PATIENT
  Age: 58 Year
  Sex: Female
  Weight: 90.7 kg

DRUGS (12)
  1. CELEBREX [Suspect]
     Indication: ARTHRITIS
     Dosage: UNK, 3X/DAY
     Route: 048
     Dates: end: 201210
  2. CELEBREX [Suspect]
     Indication: INTERVERTEBRAL DISCITIS
     Dosage: 200 MG, 1X/DAY
     Route: 048
     Dates: start: 20120425, end: 20121001
  3. CELEBREX [Suspect]
     Indication: OSTEOARTHRITIS
  4. DIAZEPAM [Concomitant]
     Indication: BIPOLAR DISORDER
     Dosage: 5 MG, 2X/DAY
  5. DIAZEPAM [Concomitant]
     Dosage: 5 MG, 4X/DAY
  6. LISINOPRIL [Concomitant]
     Dosage: 10 MG, 1X/DAY
  7. NEXIUM [Concomitant]
     Dosage: 40 MG, 1X/DAY
  8. BENTYL [Concomitant]
     Dosage: 10 MG, 2X/DAY, AS NEEDED
  9. LIDODERM PATCH [Concomitant]
     Dosage: UNK, DAILY
  10. LIPITOR [Concomitant]
     Dosage: 20 MG, 1X/DAY
  11. PREDNISONE [Concomitant]
     Dosage: 10 MG, DAILY
  12. GABAPENTIN [Concomitant]
     Dosage: 300 MG, DAILY

REACTIONS (7)
  - Pancreatitis [Unknown]
  - Gallbladder disorder [Unknown]
  - Irritable bowel syndrome [Unknown]
  - Gastric mucosal lesion [Unknown]
  - Hypertension [Unknown]
  - Blood cholesterol increased [Unknown]
  - Inflammation [Recovering/Resolving]
